FAERS Safety Report 15348621 (Version 3)
Quarter: 2018Q3

REPORT INFORMATION
  Report Type: Spontaneous
  Country: JP (occurrence: JP)
  Receive Date: 20180904
  Receipt Date: 20180914
  Transmission Date: 20181010
  Serious: Yes (Death, Other)
  Sender: FDA-Public Use
  Company Number: JP-PFIZER INC-2018352834

PATIENT
  Age: 57 Year
  Sex: Male
  Weight: 63.5 kg

DRUGS (6)
  1. METHYLPREDNISOLONE SODIUM SUCCINATE. [Suspect]
     Active Substance: METHYLPREDNISOLONE SODIUM SUCCINATE
     Indication: THROMBOTIC MICROANGIOPATHY
     Dosage: 1 G, DAILY (1 G X 3 DAYS)
     Dates: start: 200502
  2. BETAMETHASONE. [Concomitant]
     Active Substance: BETAMETHASONE
     Indication: DERMATOMYOSITIS
     Dosage: 6.5 MG, DAILY
     Dates: start: 200401
  3. BETAMETHASONE. [Concomitant]
     Active Substance: BETAMETHASONE
     Dosage: 2 MG, DAILY
     Dates: start: 200501
  4. IMMUNOGLOBULIN HUMAN NORMAL [Suspect]
     Active Substance: HUMAN IMMUNOGLOBULIN G
     Indication: DERMATOMYOSITIS
     Dosage: 20 G, DAILY (INFUSION)
     Route: 041
     Dates: start: 200502
  5. BETAMETHASONE. [Concomitant]
     Active Substance: BETAMETHASONE
     Dosage: 1.75 MG, DAILY
     Dates: start: 200501
  6. BETAMETHASONE. [Concomitant]
     Active Substance: BETAMETHASONE
     Dosage: 3 MG, DAILY
     Dates: start: 200502

REACTIONS (1)
  - Pulmonary alveolar haemorrhage [Fatal]
